FAERS Safety Report 8369013-1 (Version None)
Quarter: 2012Q2

REPORT INFORMATION
  Report Type: 
  Country: None (occurrence: None)
  Receive Date: 20120516
  Receipt Date: 20120516
  Transmission Date: 20120825
  Serious: Yes (Life-Threatening, Hospitalization, Disabling)
  Sender: FDA-Public Use
  Company Number: None

PATIENT
  Sex: Male
  Weight: 81.1939 kg

DRUGS (2)
  1. SIMVASTATIN [Suspect]
     Indication: BLOOD CHOLESTEROL
     Dosage: 40MG ONCE A DAY PO
     Route: 048
  2. AMIODARONE HCL [Suspect]
     Indication: CARDIAC DISORDER
     Dosage: ONCE A DAY PO
     Route: 048

REACTIONS (1)
  - CEREBROVASCULAR ACCIDENT [None]
